FAERS Safety Report 23947767 (Version 1)
Quarter: 2024Q2

REPORT INFORMATION
  Report Type: Report from Study
  Country: US (occurrence: US)
  Receive Date: 20240606
  Receipt Date: 20240606
  Transmission Date: 20240716
  Serious: Yes (Hospitalization)
  Sender: FDA-Public Use
  Company Number: US-BIOGEN-2024BI01267799

PATIENT
  Sex: Female

DRUGS (19)
  1. TYSABRI [Suspect]
     Active Substance: NATALIZUMAB
     Indication: Multiple sclerosis
     Dosage: STARTING DOSE
     Route: 050
  2. KESIMPTA [Concomitant]
     Active Substance: OFATUMUMAB
     Indication: Product used for unknown indication
     Dosage: 0.4 ML SOLUTION AUTO INJECTOR AS DIRECTED
     Route: 050
  3. ESTEZ-C [Concomitant]
     Indication: Product used for unknown indication
     Dosage: 500-550 MG AS DIRECTED ORALLY
     Route: 050
  4. VITAMIN D3 [Concomitant]
     Active Substance: CHOLECALCIFEROL
     Indication: Product used for unknown indication
     Dosage: 2000 UT
     Route: 050
  5. BIOTIN [Concomitant]
     Active Substance: BIOTIN
     Indication: Product used for unknown indication
     Route: 050
  6. CALCIUM [Concomitant]
     Active Substance: CALCIUM
     Indication: Product used for unknown indication
     Dosage: WITH MEALS
     Route: 050
  7. PRESER VISION AREDS [Concomitant]
     Indication: Product used for unknown indication
     Route: 050
  8. PEPCID [Concomitant]
     Active Substance: FAMOTIDINE
     Indication: Product used for unknown indication
     Dosage: BED TIME AS NEEDED
     Route: 050
  9. OMEPRAZOLE [Concomitant]
     Active Substance: DONEPEZIL HYDROCHLORIDE\OMEPRAZOLE\OMEPRAZOLE MAGNESIUM
     Indication: Product used for unknown indication
     Dosage: DELAYED CAPSULE 30 MIN BEFORE MORNING MEAL ORALLY ONCE A DAY
     Route: 050
  10. COLCHICINE [Concomitant]
     Active Substance: COLCHICINE
     Indication: Product used for unknown indication
     Route: 050
  11. MODAFINIL [Concomitant]
     Active Substance: MODAFINIL
     Indication: Product used for unknown indication
     Dosage: MORNING
     Route: 050
  12. IBANDRONATE SODIUM [Concomitant]
     Active Substance: IBANDRONATE SODIUM
     Indication: Product used for unknown indication
     Route: 050
  13. AMILORIDE HYDROCHROROTHIAZIDE [Concomitant]
     Indication: Product used for unknown indication
     Dosage: 5-50 MG TABLET WITH FOOD
     Route: 050
  14. CYMBALTA [Concomitant]
     Active Substance: DULOXETINE HYDROCHLORIDE
     Indication: Product used for unknown indication
     Dosage: 2 CAPSULES ORALLY ONCE A DAY
     Route: 050
  15. VALACYCLOVIR HYDROCHLORIDE [Concomitant]
     Active Substance: VALACYCLOVIR HYDROCHLORIDE
     Indication: Product used for unknown indication
     Dosage: STOP DATE 18 JUL 2024
     Route: 050
  16. VALACYCLOVIR HYDROCHLORIDE [Concomitant]
     Active Substance: VALACYCLOVIR HYDROCHLORIDE
     Dosage: BY MOUTH ONCE DAILY FOR 10 DAYS
     Route: 050
  17. BUPROPION HYDROCHLORIDE [Concomitant]
     Active Substance: BUPROPION HYDROCHLORIDE
     Indication: Product used for unknown indication
     Dosage: EXTENDED RELEASE 24 HRS 1 TABLET IN THE MORNING ORALLY ONCE A DAY
     Route: 050
  18. OMEPRAZOLE [Concomitant]
     Active Substance: DONEPEZIL HYDROCHLORIDE\OMEPRAZOLE\OMEPRAZOLE MAGNESIUM
     Indication: Product used for unknown indication
     Dosage: DELAYED RELEASE 1 CAPSULE 30 MIN BEFORE MORNING MEAL
     Route: 050
  19. BACLOFEN [Concomitant]
     Active Substance: BACLOFEN
     Indication: Product used for unknown indication
     Dosage: STOP DATE 10 AUG 2024
     Route: 050

REACTIONS (1)
  - Blood potassium decreased [Unknown]
